FAERS Safety Report 8587064-9 (Version None)
Quarter: 2012Q3

REPORT INFORMATION
  Report Type: 
  Country: None (occurrence: None)
  Receive Date: 20120810
  Receipt Date: 20120807
  Transmission Date: 20120928
  Serious: Yes (Other)
  Sender: FDA-Public Use
  Company Number: US-ROCHE-760043

PATIENT
  Sex: Female
  Weight: 59 kg

DRUGS (1)
  1. ACCUTANE [Suspect]
     Indication: ACNE
     Dosage: 40 MG DAILY ON ODD DAYS, 80 MG ON EVEN DAYS
     Route: 048
     Dates: start: 19960516, end: 19960901

REACTIONS (9)
  - COLONIC POLYP [None]
  - ARTHRALGIA [None]
  - CROHN'S DISEASE [None]
  - RECTAL FISSURE [None]
  - RECTAL HAEMORRHAGE [None]
  - PYOGENIC GRANULOMA [None]
  - ABDOMINAL PAIN [None]
  - INFLAMMATORY BOWEL DISEASE [None]
  - BLOOD ALKALINE PHOSPHATASE INCREASED [None]
